FAERS Safety Report 9189660 (Version 1)
Quarter: 2013Q1

REPORT INFORMATION
  Report Type: Spontaneous
  Country: US (occurrence: None)
  Receive Date: 20130322
  Receipt Date: 20130322
  Transmission Date: 20140127
  Serious: No
  Sender: FDA-Public Use
  Company Number: None

PATIENT
  Sex: Female

DRUGS (1)
  1. AVONEX [Suspect]
     Route: 030
     Dates: start: 20100113

REACTIONS (5)
  - Migraine [None]
  - Multiple sclerosis relapse [None]
  - Optic neuritis [None]
  - Optic nerve disorder [None]
  - Drug ineffective [None]
